FAERS Safety Report 21364226 (Version 1)
Quarter: 2022Q3

REPORT INFORMATION
  Report Type: Report from Study
  Country: US (occurrence: US)
  Receive Date: 20220922
  Receipt Date: 20220922
  Transmission Date: 20221026
  Serious: Yes (Life-Threatening, Hospitalization, Other)
  Sender: FDA-Public Use
  Company Number: US-BRISTOL-MYERS SQUIBB COMPANY-2022-106044

PATIENT
  Age: 74 Year
  Sex: Female
  Weight: 66.68 kg

DRUGS (4)
  1. ELIQUIS [Suspect]
     Active Substance: APIXABAN
     Indication: Thrombosis
     Route: 048
  2. SYNTHROID [Concomitant]
     Active Substance: LEVOTHYROXINE SODIUM
     Indication: Product used for unknown indication
  3. ROBAXIN [Concomitant]
     Active Substance: METHOCARBAMOL
     Indication: Product used for unknown indication
  4. DEXILANT [Concomitant]
     Active Substance: DEXLANSOPRAZOLE
     Indication: Product used for unknown indication

REACTIONS (14)
  - Headache [Unknown]
  - Dizziness [Unknown]
  - Arthralgia [Unknown]
  - Palpitations [Unknown]
  - COVID-19 [Unknown]
  - Blood pressure increased [Unknown]
  - Body temperature abnormal [Unknown]
  - Vein disorder [Unknown]
  - Fall [Unknown]
  - Rotator cuff syndrome [Unknown]
  - Fatigue [Unknown]
  - Asthenia [Unknown]
  - Balance disorder [Unknown]
  - Intentional product use issue [Unknown]

NARRATIVE: CASE EVENT DATE: 20210727
